FAERS Safety Report 15401565 (Version 1)
Quarter: 2018Q3

REPORT INFORMATION
  Report Type: Spontaneous
  Country: US (occurrence: US)
  Receive Date: 20180914
  Receipt Date: 20180914
  Transmission Date: 20181010
  Serious: Yes (Hospitalization, Disabling)
  Sender: FDA-Public Use
  Company Number: None

PATIENT
  Age: 68 Year
  Sex: Male
  Weight: 85.5 kg

DRUGS (7)
  1. TRAMADOL. [Concomitant]
     Active Substance: TRAMADOL
  2. VITAMIN D3 [Concomitant]
     Active Substance: CHOLECALCIFEROL
  3. CPAP DEVICE [Concomitant]
  4. FISH OIL [Concomitant]
     Active Substance: FISH OIL
  5. MELOXICAM. [Concomitant]
     Active Substance: MELOXICAM
  6. LEVOFLOXACIN NAME OF THE MEDICATION AS LISTED IN MY HOSPITAL RECORDS [Suspect]
     Active Substance: LEVOFLOXACIN
     Indication: ANTIBIOTIC PROPHYLAXIS
     Dosage: ?          QUANTITY:1 INJECTION(S);?
     Route: 042
  7. ASPIRIN. [Concomitant]
     Active Substance: ASPIRIN

REACTIONS (7)
  - Memory impairment [None]
  - Confusional state [None]
  - Pruritus [None]
  - Erythema [None]
  - Rash pruritic [None]
  - Hypersensitivity [None]
  - Rash [None]

NARRATIVE: CASE EVENT DATE: 20180814
